FAERS Safety Report 18474492 (Version 4)
Quarter: 2020Q4

REPORT INFORMATION
  Report Type: Spontaneous
  Country: US (occurrence: US)
  Receive Date: 20201106
  Receipt Date: 20201216
  Transmission Date: 20210114
  Serious: Yes (Hospitalization)
  Sender: FDA-Public Use
  Company Number: US-AMGEN-USASP2020175403

PATIENT
  Sex: Female

DRUGS (1)
  1. NEULASTA [Suspect]
     Active Substance: PEGFILGRASTIM
     Indication: PRODUCT USED FOR UNKNOWN INDICATION
     Dosage: UNK
     Route: 065

REACTIONS (5)
  - Pyrexia [Recovered/Resolved]
  - Wrong technique in product usage process [Unknown]
  - Autoscopy [Recovered/Resolved]
  - White blood cell count increased [Unknown]
  - Sensory disturbance [Recovered/Resolved]

NARRATIVE: CASE EVENT DATE: 202009
